FAERS Safety Report 11184500 (Version 1)
Quarter: 2015Q2

REPORT INFORMATION
  Report Type: Spontaneous
  Country: JP (occurrence: JP)
  Receive Date: 20150612
  Receipt Date: 20150612
  Transmission Date: 20150821
  Serious: Yes (Hospitalization)
  Sender: FDA-Public Use
  Company Number: JP-PERRIGO-15JP005634

PATIENT
  Age: 16 Year
  Sex: Male

DRUGS (27)
  1. IBUPROFEN 200 MG 604 [Suspect]
     Active Substance: IBUPROFEN
     Indication: PYREXIA
     Dosage: UNK
     Route: 048
  2. TRANEXAMIC ACID. [Suspect]
     Active Substance: TRANEXAMIC ACID
     Indication: ABDOMINAL PAIN
  3. ACETAMINOPHEN 650MG ER 544 [Suspect]
     Active Substance: ACETAMINOPHEN
     Indication: PYREXIA
  4. MAOBUSHISAISHINTO [Suspect]
     Active Substance: HERBALS
     Indication: PYREXIA
     Dosage: UNK
     Route: 065
  5. CEFCAPENE PIVOXIL HYDROCHLORIDE [Suspect]
     Active Substance: CEFCAPENE PIVOXIL HYDROCHLORIDE
     Indication: ABDOMINAL DISTENSION
  6. CLARITHROMYCIN. [Suspect]
     Active Substance: CLARITHROMYCIN
     Indication: ABDOMINAL DISTENSION
  7. TRANEXAMIC ACID. [Suspect]
     Active Substance: TRANEXAMIC ACID
     Indication: ABDOMINAL DISTENSION
  8. CARBOCYSTEINE [Suspect]
     Active Substance: CARBOCYSTEINE
     Indication: ABDOMINAL DISTENSION
  9. IBUPROFEN 200 MG 604 [Suspect]
     Active Substance: IBUPROFEN
     Indication: ABDOMINAL DISTENSION
  10. MAOBUSHISAISHINTO [Suspect]
     Active Substance: HERBALS
     Indication: ABDOMINAL PAIN
  11. MAOBUSHISAISHINTO [Suspect]
     Active Substance: HERBALS
     Indication: ABDOMINAL DISTENSION
  12. CLARITHROMYCIN. [Suspect]
     Active Substance: CLARITHROMYCIN
     Indication: PYREXIA
     Dosage: UNK
     Route: 065
  13. ACETAMINOPHEN 650MG ER 544 [Suspect]
     Active Substance: ACETAMINOPHEN
     Indication: HEADACHE
     Dosage: UNK
     Route: 048
  14. ACETAMINOPHEN 650MG ER 544 [Suspect]
     Active Substance: ACETAMINOPHEN
     Indication: ABDOMINAL PAIN
  15. ISOPROPYLANTIPYRINE [Suspect]
     Active Substance: PROPYPHENAZONE
     Indication: HEADACHE
     Dosage: UNK
     Route: 065
  16. LYSOZYME HYDROCHLORIDE [Suspect]
     Active Substance: LYSOZYME HYDROCHLORIDE
     Indication: ABDOMINAL PAIN
  17. TRANEXAMIC ACID. [Suspect]
     Active Substance: TRANEXAMIC ACID
     Indication: PYREXIA
     Dosage: UNK
     Route: 065
  18. CARBOCYSTEINE [Suspect]
     Active Substance: CARBOCYSTEINE
     Indication: PYREXIA
     Dosage: UNK
     Route: 065
  19. CLARITHROMYCIN. [Suspect]
     Active Substance: CLARITHROMYCIN
     Indication: ABDOMINAL PAIN
  20. ACETAMINOPHEN 650MG ER 544 [Suspect]
     Active Substance: ACETAMINOPHEN
     Indication: ABDOMINAL DISTENSION
  21. LYSOZYME HYDROCHLORIDE [Suspect]
     Active Substance: LYSOZYME HYDROCHLORIDE
     Indication: ABDOMINAL DISTENSION
  22. CEFCAPENE PIVOXIL HYDROCHLORIDE [Suspect]
     Active Substance: CEFCAPENE PIVOXIL HYDROCHLORIDE
     Indication: PYREXIA
     Dosage: UNK
     Route: 065
  23. IBUPROFEN 200 MG 604 [Suspect]
     Active Substance: IBUPROFEN
     Indication: ABDOMINAL PAIN
  24. ALLYLISOPROPYLACETYLUREA [Suspect]
     Active Substance: APRONALIDE
     Indication: HEADACHE
     Dosage: UNK
     Route: 065
  25. LYSOZYME HYDROCHLORIDE [Suspect]
     Active Substance: LYSOZYME HYDROCHLORIDE
     Indication: PYREXIA
     Dosage: UNK
     Route: 065
  26. CEFCAPENE PIVOXIL HYDROCHLORIDE [Suspect]
     Active Substance: CEFCAPENE PIVOXIL HYDROCHLORIDE
     Indication: ABDOMINAL PAIN
  27. CARBOCYSTEINE [Suspect]
     Active Substance: CARBOCYSTEINE
     Indication: ABDOMINAL PAIN

REACTIONS (12)
  - Human herpesvirus 6 infection [None]
  - Drug-induced liver injury [Recovering/Resolving]
  - Procalcitonin increased [Unknown]
  - Ascites [Unknown]
  - Pericardial effusion [Recovering/Resolving]
  - Hepatic function abnormal [None]
  - Leukocytosis [Unknown]
  - Hyponatraemia [Unknown]
  - Periportal oedema [Unknown]
  - Hepatic necrosis [Recovering/Resolving]
  - Gallbladder disorder [Unknown]
  - Pleural effusion [Unknown]
